FAERS Safety Report 14465890 (Version 1)
Quarter: 2018Q1

REPORT INFORMATION
  Report Type: Spontaneous
  Country: CA (occurrence: CA)
  Receive Date: 20180131
  Receipt Date: 20180131
  Transmission Date: 20180509
  Serious: Yes (Other)
  Sender: FDA-Public Use
  Company Number: CA-009507513-1801CAN014496

PATIENT
  Sex: Male

DRUGS (7)
  1. EZETROL [Suspect]
     Active Substance: EZETIMIBE
     Dosage: UNK
     Route: 048
  2. ASPIRIN. [Suspect]
     Active Substance: ASPIRIN
     Dosage: UNK
  3. ASPIRIN. [Suspect]
     Active Substance: ASPIRIN
     Dosage: UNK
  4. GLOBULIN, IMMUNE [Suspect]
     Active Substance: HUMAN IMMUNOGLOBULIN G
     Indication: IMMUNODEFICIENCY COMMON VARIABLE
     Dosage: 16 G, 1 EVERY 1 WEEK
     Route: 058
  5. ATENOLOL (+) CHLORTHALIDONE [Suspect]
     Active Substance: ATENOLOL\CHLORTHALIDONE
     Dosage: UNK
  6. COVERSYL (PERINDOPRIL ARGININE) [Suspect]
     Active Substance: PERINDOPRIL
     Dosage: UNK
  7. ASPIRIN. [Suspect]
     Active Substance: ASPIRIN
     Dosage: UNK

REACTIONS (2)
  - Drug ineffective [Unknown]
  - Malaise [Unknown]
